FAERS Safety Report 13107988 (Version 3)
Quarter: 2017Q3

REPORT INFORMATION
  Report Type: Spontaneous
  Country: JP (occurrence: JP)
  Receive Date: 20170112
  Receipt Date: 20170725
  Transmission Date: 20171127
  Serious: Yes (Other)
  Sender: FDA-Public Use
  Company Number: JP-ASTELLAS-2017JP000113

PATIENT
  Age: 69 Year
  Sex: Female
  Weight: 49 kg

DRUGS (9)
  1. PROGRAF [Suspect]
     Active Substance: TACROLIMUS\TACROLIMUS ANHYDROUS
     Dosage: TAPERED
     Route: 048
  2. PROGRAF [Suspect]
     Active Substance: TACROLIMUS\TACROLIMUS ANHYDROUS
     Indication: PROPHYLAXIS AGAINST GRAFT VERSUS HOST DISEASE
     Dosage: 0.02 MG/KG, ONCE DAILY
     Route: 041
     Dates: start: 20150923
  3. PROGRAF [Suspect]
     Active Substance: TACROLIMUS\TACROLIMUS ANHYDROUS
     Indication: PROPHYLAXIS AGAINST GRAFT VERSUS HOST DISEASE
     Dosage: UNK UNK, TWICE DAILY
     Route: 048
     Dates: start: 20151102
  4. METHOTREXATE. [Concomitant]
     Active Substance: METHOTREXATE
     Route: 041
     Dates: start: 20150927, end: 20150930
  5. PROGRAF [Suspect]
     Active Substance: TACROLIMUS\TACROLIMUS ANHYDROUS
     Dosage: TAPERED
     Route: 048
  6. METHOTREXATE. [Concomitant]
     Active Substance: METHOTREXATE
     Indication: PROPHYLAXIS AGAINST GRAFT VERSUS HOST DISEASE
     Route: 041
     Dates: start: 20150925, end: 20150925
  7. NEUTROGIN [Concomitant]
     Active Substance: LENOGRASTIM
     Indication: NEUTROPENIA
     Dosage: 250 UG, ONCE DAILY
     Route: 058
     Dates: start: 20150929, end: 20151020
  8. PROGRAF [Suspect]
     Active Substance: TACROLIMUS\TACROLIMUS ANHYDROUS
     Dosage: TAPERED
     Route: 041
     Dates: end: 20151101
  9. PROGRAF [Suspect]
     Active Substance: TACROLIMUS\TACROLIMUS ANHYDROUS
     Indication: PROPHYLAXIS AGAINST GRAFT VERSUS HOST DISEASE
     Dosage: UNK UNK, TWICE DAILY
     Route: 048
     Dates: start: 20151102

REACTIONS (1)
  - Cytomegalovirus test positive [Recovering/Resolving]

NARRATIVE: CASE EVENT DATE: 20151102
